FAERS Safety Report 16819971 (Version 1)
Quarter: 2019Q3

REPORT INFORMATION
  Report Type: Report from Study
  Country: None (occurrence: CA)
  Receive Date: 20190918
  Receipt Date: 20190918
  Transmission Date: 20191005
  Serious: Yes (Hospitalization)
  Sender: FDA-Public Use
  Company Number: CA-ABBVIE-19K-028-2923980-00

PATIENT
  Sex: Female

DRUGS (1)
  1. HUMIRA [Suspect]
     Active Substance: ADALIMUMAB
     Indication: RHEUMATOID ARTHRITIS
     Route: 058
     Dates: start: 20120713, end: 20190820

REACTIONS (3)
  - Loss of consciousness [Recovered/Resolved]
  - Bronchitis [Unknown]
  - Dizziness [Unknown]

NARRATIVE: CASE EVENT DATE: 2019
